FAERS Safety Report 6047643-X (Version None)
Quarter: 2009Q1

REPORT INFORMATION
  Report Type: 
  Country: None (occurrence: None)
  Receive Date: 20090123
  Receipt Date: 20081021
  Transmission Date: 20090719
  Serious: Yes (Hospitalization)
  Sender: FDA-Public Use
  Company Number: A0743526A

PATIENT
  Age: 47 Year
  Sex: Male
  Weight: 70.8 kg

DRUGS (7)
  1. HYCAMTIN [Suspect]
     Dosage: 1.5MGM2 CYCLIC
     Route: 042
     Dates: start: 20080602, end: 20080623
  2. NEULASTA [Concomitant]
  3. ZOFRAN [Concomitant]
  4. POTASSIUM CHLORIDE [Concomitant]
  5. PHENERGAN HCL [Concomitant]
  6. ALBUTEROL [Concomitant]
  7. COMBIVENT [Concomitant]

REACTIONS (5)
  - ADVERSE EVENT [None]
  - CARDIAC ARREST [None]
  - DRUG INEFFECTIVE [None]
  - DYSPNOEA [None]
  - METASTASIS [None]
